FAERS Safety Report 4360983-5 (Version None)
Quarter: 2004Q2

REPORT INFORMATION
  Report Type: 
  Country: None (occurrence: None)
  Receive Date: 20040517
  Receipt Date: 20040504
  Transmission Date: 20050107
  Serious: Yes (Hospitalization)
  Sender: FDA-Public Use
  Company Number: 2004AC00095

PATIENT
  Age: 78 Year
  Sex: Male

DRUGS (5)
  1. LIDOCAINE [Suspect]
     Indication: ANAESTHESIA
     Dosage: 5 ML PCUT
  2. LIDOCAINE [Suspect]
     Indication: ANAESTHESIA
     Dosage: 3 ML  PNEU
  3. HYALURONIDASE [Suspect]
     Dosage: 750 U DAILY PCUT
  4. HYALURONIDASE [Suspect]
     Dosage: 400 U DAILY PNEU
  5. CEFUROXIME [Concomitant]

REACTIONS (9)
  - EXOPHTHALMOS [None]
  - EYE MOVEMENT DISORDER [None]
  - EYE SWELLING [None]
  - INFECTION [None]
  - INFLAMMATION [None]
  - INTRAOCULAR PRESSURE INCREASED [None]
  - MEDICATION ERROR [None]
  - PUPILLARY DISORDER [None]
  - VISUAL ACUITY REDUCED [None]
